FAERS Safety Report 4759846-2 (Version None)
Quarter: 2005Q3

REPORT INFORMATION
  Report Type: 
  Country: None (occurrence: None)
  Receive Date: 20050831
  Receipt Date: 20050831
  Transmission Date: 20060218
  Serious: Yes (Life-Threatening, Hospitalization)
  Sender: FDA-Public Use
  Company Number: None

PATIENT
  Age: 72 Year
  Sex: Female

DRUGS (11)
  1. WARFARIN 2.5 MG COUMADIN [Suspect]
     Dosage: 2.5 MG DAILY PO
     Route: 048
  2. NORVASC [Concomitant]
  3. ISOSORBIDE DINITRITE - IMDUR [Concomitant]
  4. LOPRESSOR [Concomitant]
  5. FAMITIDINE - PEPCID [Concomitant]
  6. FENTANYL TRANSDERMAL-DURAGESIC [Concomitant]
  7. REGLAN [Concomitant]
  8. SIMVASTATIN [Concomitant]
  9. DILANTIN [Concomitant]
  10. TYLENOL [Concomitant]
  11. BISACODYL - DUCOLAX [Concomitant]

REACTIONS (6)
  - ACTIVATED PARTIAL THROMBOPLASTIN TIME PROLONGED [None]
  - HAEMATEMESIS [None]
  - HAEMATOCRIT DECREASED [None]
  - HAEMOGLOBIN DECREASED [None]
  - PROTHROMBIN TIME PROLONGED [None]
  - TREATMENT NONCOMPLIANCE [None]
